FAERS Safety Report 8213932-3 (Version None)
Quarter: 2012Q1

REPORT INFORMATION
  Report Type: 
  Country: None (occurrence: None)
  Receive Date: 20120316
  Receipt Date: 20120312
  Transmission Date: 20120608
  Serious: Yes (Other)
  Sender: FDA-Public Use
  Company Number: US-ACCORD-012661

PATIENT

DRUGS (2)
  1. IRINOTECAN HYDROCHLORIDE [Suspect]
  2. CISPLATIN [Suspect]

REACTIONS (3)
  - PNEUMATOSIS INTESTINALIS [None]
  - OFF LABEL USE [None]
  - PORTAL VENOUS GAS [None]
